FAERS Safety Report 5351200-8 (Version None)
Quarter: 2007Q2

REPORT INFORMATION
  Report Type: 
  Country: None (occurrence: None)
  Receive Date: 20070608
  Receipt Date: 20070529
  Transmission Date: 20071010
  Serious: Yes (Hospitalization, Other)
  Sender: FDA-Public Use
  Company Number: TR-PFIZER INC-2007043490

PATIENT
  Age: 54 Year
  Sex: Female

DRUGS (3)
  1. LITHIUM CARBONATE [Suspect]
     Indication: MANIA
     Dosage: DAILY DOSE:1200MG
  2. RISPERIDONE [Suspect]
     Dosage: DAILY DOSE:5MG
  3. BIPERIDEN HYDROCHLORIDE TAB [Suspect]
     Dosage: DAILY DOSE:4MG

REACTIONS (6)
  - DEEP VEIN THROMBOSIS [None]
  - EXTRAPYRAMIDAL DISORDER [None]
  - HYPERTHYROIDISM [None]
  - NEUROLEPTIC MALIGNANT SYNDROME [None]
  - PNEUMONIA [None]
  - THALASSAEMIA BETA [None]
